FAERS Safety Report 5414091-2 (Version None)
Quarter: 2007Q3

REPORT INFORMATION
  Report Type: 
  Country: None (occurrence: None)
  Receive Date: 20070814
  Receipt Date: 20070802
  Transmission Date: 20080115
  Serious: Yes (Other)
  Sender: FDA-Public Use
  Company Number: US-PFIZER INC-2007005835

PATIENT
  Sex: Female
  Weight: 47.2 kg

DRUGS (5)
  1. CLEOCIN HCL CAPSULE [Suspect]
     Indication: PROPHYLAXIS
  2. LEVAQUIN [Suspect]
  3. VITAMIN CAP [Concomitant]
  4. FISH OIL [Concomitant]
  5. AMOXICILLIN [Concomitant]

REACTIONS (7)
  - BREAST SWELLING [None]
  - ERYTHEMA [None]
  - MASTITIS [None]
  - RADIATION SKIN INJURY [None]
  - RASH [None]
  - SKIN EXFOLIATION [None]
  - TENDERNESS [None]
